FAERS Safety Report 13315500 (Version 1)
Quarter: 2017Q1

REPORT INFORMATION
  Report Type: Spontaneous
  Country: FR (occurrence: FR)
  Receive Date: 20170310
  Receipt Date: 20170310
  Transmission Date: 20170428
  Serious: Yes (Life-Threatening, Hospitalization, Other)
  Sender: FDA-Public Use
  Company Number: FR-BRISTOL-MYERS SQUIBB COMPANY-BMS-2017-017638

PATIENT
  Age: 63 Year
  Sex: Female
  Weight: 59 kg

DRUGS (1)
  1. OPDIVO [Suspect]
     Active Substance: NIVOLUMAB
     Indication: MALIGNANT NEOPLASM OF THYMUS
     Dosage: 3 MG/KG, Q2WK
     Route: 042
     Dates: start: 20170105, end: 20170119

REACTIONS (6)
  - Paralysis [Unknown]
  - Product use issue [Unknown]
  - Myasthenic syndrome [Recovered/Resolved]
  - Acute respiratory failure [Recovering/Resolving]
  - Coma [Unknown]
  - Myalgia [Recovering/Resolving]

NARRATIVE: CASE EVENT DATE: 20170125
